FAERS Safety Report 6021809-7 (Version None)
Quarter: 2008Q4

REPORT INFORMATION
  Report Type: 
  Country: None (occurrence: None)
  Receive Date: 20081223
  Receipt Date: 20081215
  Transmission Date: 20090506
  Serious: Yes (Hospitalization)
  Sender: FDA-Public Use
  Company Number: 2008-00134

PATIENT
  Age: 86 Year
  Sex: Male
  Weight: 76.2 kg

DRUGS (12)
  1. VELCADE [Suspect]
     Indication: MULTIPLE MYELOMA
     Dosage: 1.3 MG/M2, INTRAVENOUS
     Route: 042
     Dates: start: 20071102, end: 20080114
  2. MELPHALAN(MELPHALAN) VIAL [Suspect]
     Indication: MULTIPLE MYELOMA
     Dosage: 9 MG/M2, ORAL
     Route: 048
     Dates: start: 20071126, end: 20080110
  3. PREDNISONE [Suspect]
     Indication: MULTIPLE MYELOMA
     Dosage: 60 MG/M2, ORAL
     Route: 048
     Dates: start: 20071126, end: 20080110
  4. ASPIRIN [Concomitant]
  5. LYRICA [Concomitant]
  6. FLOMAX [Concomitant]
  7. EFFEXOR [Concomitant]
  8. LEVAQUIN [Concomitant]
  9. HYDRALAZINE HCL [Concomitant]
  10. ZOCOR [Concomitant]
  11. OMEPRAZOLE [Concomitant]
  12. MULTIPLE VITAMINS (ERGOCALCIFEROL, VITAMIN B NOS, TOCOPHEROL, FOLIC AC [Concomitant]

REACTIONS (7)
  - AORTIC ARTERIOSCLEROSIS [None]
  - AORTIC STENOSIS [None]
  - AORTIC VALVE INCOMPETENCE [None]
  - ATRIAL FIBRILLATION [None]
  - HAEMATURIA [None]
  - PULMONARY HYPERTENSION [None]
  - TRICUSPID VALVE INCOMPETENCE [None]
